FAERS Safety Report 7249265-1 (Version None)
Quarter: 2011Q1

REPORT INFORMATION
  Report Type: 
  Country: None (occurrence: None)
  Receive Date: 20110128
  Receipt Date: 20101208
  Transmission Date: 20110831
  Serious: Yes (Hospitalization)
  Sender: FDA-Public Use
  Company Number: US-BAYER-2010-003847

PATIENT
  Sex: Female

DRUGS (2)
  1. MAGNEVIST [Suspect]
     Indication: NUCLEAR MAGNETIC RESONANCE IMAGING
     Dosage: 19.8 ML, ONCE
     Route: 042
     Dates: start: 20101208, end: 20101208
  2. MAGNEVIST [Suspect]
     Indication: HEPATIC CIRRHOSIS

REACTIONS (4)
  - ORAL PRURITUS [None]
  - ANAPHYLACTIC REACTION [None]
  - DYSPNOEA [None]
  - THROAT IRRITATION [None]
